FAERS Safety Report 18315372 (Version 1)
Quarter: 2020Q3

REPORT INFORMATION
  Report Type: Spontaneous
  Country: FR (occurrence: FR)
  Receive Date: 20200926
  Receipt Date: 20200926
  Transmission Date: 20201103
  Serious: Yes (Hospitalization)
  Sender: FDA-Public Use
  Company Number: FR-ACCORD-202552

PATIENT
  Age: 24 Year
  Sex: Female
  Weight: 55 kg

DRUGS (4)
  1. SERTRALINE [Suspect]
     Active Substance: SERTRALINE HYDROCHLORIDE
     Route: 048
     Dates: start: 20200810, end: 20200810
  2. ALCOHOL. [Suspect]
     Active Substance: ALCOHOL
     Indication: PRODUCT USED FOR UNKNOWN INDICATION
     Dosage: NP
     Route: 048
     Dates: start: 20200809, end: 20200809
  3. TRANXENE [Suspect]
     Active Substance: CLORAZEPATE DIPOTASSIUM
     Route: 048
     Dates: start: 20200810, end: 20200810
  4. ORAP [Suspect]
     Active Substance: PIMOZIDE
     Dosage: 1 MG,
     Route: 048
     Dates: start: 20200810, end: 20200810

REACTIONS (3)
  - Intentional overdose [Unknown]
  - Poisoning deliberate [Unknown]
  - Coma [Recovered/Resolved]

NARRATIVE: CASE EVENT DATE: 20200810
